FAERS Safety Report 5823938-7 (Version None)
Quarter: 2008Q3

REPORT INFORMATION
  Report Type: 
  Country: None (occurrence: None)
  Receive Date: 20080724
  Receipt Date: 20080709
  Transmission Date: 20090109
  Serious: Yes (Other)
  Sender: FDA-Public Use
  Company Number: 234905J08USA

PATIENT
  Age: 68 Year
  Sex: Female
  Weight: 69.4003 kg

DRUGS (9)
  1. REBIF [Suspect]
     Indication: MULTIPLE SCLEROSIS
     Dosage: NOT REPORTED, 3 IN 1 WEEKS, NOT REPORTED, 44 MCG, 3 IN 1 WEEKS, SUBCUTANEOUS, 26.4 MCG, 3 IN 1 WEEKS
     Route: 058
     Dates: start: 20080523, end: 20080101
  2. REBIF [Suspect]
     Indication: MULTIPLE SCLEROSIS
     Dosage: NOT REPORTED, 3 IN 1 WEEKS, NOT REPORTED, 44 MCG, 3 IN 1 WEEKS, SUBCUTANEOUS, 26.4 MCG, 3 IN 1 WEEKS
     Route: 058
     Dates: start: 20080410, end: 20080522
  3. REBIF [Suspect]
     Indication: MULTIPLE SCLEROSIS
     Dosage: NOT REPORTED, 3 IN 1 WEEKS, NOT REPORTED, 44 MCG, 3 IN 1 WEEKS, SUBCUTANEOUS, 26.4 MCG, 3 IN 1 WEEKS
     Route: 058
     Dates: start: 20080101
  4. METHADONE HCL [Concomitant]
  5. SINEQUAN [Concomitant]
  6. LEXAPRO [Concomitant]
  7. LASIX [Concomitant]
  8. ALDACTONE [Concomitant]
  9. ATIVAN [Concomitant]

REACTIONS (1)
  - CONVULSION [None]
